FAERS Safety Report 6221250-8 (Version None)
Quarter: 2009Q2

REPORT INFORMATION
  Report Type: 
  Country: None (occurrence: None)
  Receive Date: 20090610
  Receipt Date: 20090601
  Transmission Date: 20091009
  Serious: Yes (Other)
  Sender: FDA-Public Use
  Company Number: IT-MERCK-0904ITA00017

PATIENT
  Age: 62 Year
  Sex: Female

DRUGS (1)
  1. MODURETIC 5-50 [Suspect]
     Indication: HYPERTENSION
     Route: 048
     Dates: start: 20071229, end: 20081229

REACTIONS (1)
  - ERYTHEMA [None]
